FAERS Safety Report 7499818-0 (Version None)
Quarter: 2011Q2

REPORT INFORMATION
  Report Type: 
  Country: None (occurrence: None)
  Receive Date: 20110524
  Receipt Date: 20110519
  Transmission Date: 20111010
  Serious: Yes (Death)
  Sender: FDA-Public Use
  Company Number: NL-ROCHE-778240

PATIENT
  Sex: Male
  Weight: 85.8 kg

DRUGS (4)
  1. DEXAMETHASONE [Suspect]
     Route: 065
     Dates: start: 20110101, end: 20110519
  2. PANTOPRAZOLE [Concomitant]
     Dates: end: 20110119
  3. BLINDED BEVACIZUMAB [Suspect]
     Indication: GLIOBLASTOMA
     Dosage: DATE OF LAST DOSE PRIOR TO SAE: 27 APR 2011
     Route: 042
     Dates: start: 20110131, end: 20110427
  4. TEMOZOLOMIDE [Suspect]
     Indication: GLIOBLASTOMA
     Dosage: LAST DOSE PRIOR TO SAE: 16 APR 2011
     Route: 048
     Dates: start: 20110131, end: 20110416

REACTIONS (1)
  - CEREBROVASCULAR ACCIDENT [None]
